FAERS Safety Report 12221067 (Version 1)
Quarter: 2016Q1

REPORT INFORMATION
  Report Type: Spontaneous
  Country: CN (occurrence: CN)
  Receive Date: 20160330
  Receipt Date: 20160330
  Transmission Date: 20160526
  Serious: Yes (Hospitalization)
  Sender: FDA-Public Use
  Company Number: CN-BAXTER-2016BAX016595

PATIENT
  Age: 51 Year
  Sex: Male
  Weight: 90 kg

DRUGS (6)
  1. ASPIRIN. [Suspect]
     Active Substance: ASPIRIN
     Indication: PLATELET AGGREGATION INHIBITION
     Route: 048
     Dates: start: 20150601, end: 20150606
  2. 5% GLUCOSE  INJECTION [Suspect]
     Active Substance: DEXTROSE
     Indication: MEDICATION DILUTION
     Route: 041
     Dates: start: 20150601, end: 20150602
  3. 20% MANNITOL INJECTION [Suspect]
     Active Substance: MANNITOL
     Indication: EYE PAIN
     Route: 041
     Dates: start: 20150602
  4. SHU XUE NING [Suspect]
     Active Substance: GINKGO
     Indication: ARTERIOSCLEROSIS CORONARY ARTERY
     Route: 041
     Dates: start: 20150601, end: 20150602
  5. TIMOLOL. [Suspect]
     Active Substance: TIMOLOL
     Indication: EYE PAIN
     Route: 047
     Dates: start: 20150602
  6. PLAVIX [Suspect]
     Active Substance: CLOPIDOGREL BISULFATE
     Indication: PLATELET AGGREGATION INHIBITION
     Route: 048
     Dates: start: 20150601, end: 20150606

REACTIONS (5)
  - Eye swelling [None]
  - Blood pressure systolic increased [None]
  - Eye pain [Recovering/Resolving]
  - Muscular weakness [Recovering/Resolving]
  - Cerebral haemorrhage [Recovering/Resolving]

NARRATIVE: CASE EVENT DATE: 20150602
